FAERS Safety Report 18384604 (Version 6)
Quarter: 2021Q2

REPORT INFORMATION
  Report Type: Report from Study
  Country: PE (occurrence: PE)
  Receive Date: 20201015
  Receipt Date: 20210610
  Transmission Date: 20210717
  Serious: Yes (Other)
  Sender: FDA-Public Use
  Company Number: NVSC2020PE275352

PATIENT
  Age: 63 Year
  Sex: Female
  Weight: 79 kg

DRUGS (35)
  1. TILAIRE [Concomitant]
     Indication: ASTHMA
     Dosage: 250 MG, CONDITIONAL
     Route: 048
     Dates: start: 1992
  2. ACETYLCYSTEIN [Concomitant]
     Active Substance: ACETYLCYSTEINE
     Indication: ASTHMA
     Dosage: 200 MG, CONDITIONAL
     Route: 048
     Dates: start: 1992
  3. NAPROXEN. [Concomitant]
     Active Substance: NAPROXEN
     Dosage: UNK
     Route: 065
  4. VERAPAMIL [Concomitant]
     Active Substance: VERAPAMIL HYDROCHLORIDE
     Dosage: UNK
     Route: 065
  5. OMEPRAZOLE. [Concomitant]
     Active Substance: OMEPRAZOLE
     Indication: CHRONIC GASTRITIS
     Dosage: UNK UNK, Q24H
     Route: 048
  6. XOLAIR [Suspect]
     Active Substance: OMALIZUMAB
     Dosage: 150 MG, ONCE EVERY 2 WEEKS
     Route: 058
     Dates: end: 20210506
  7. SERETIDE [Concomitant]
     Active Substance: FLUTICASONE PROPIONATE\SALMETEROL XINAFOATE
     Indication: ASTHMA
     Dosage: 2 DF, Q12H
     Route: 055
     Dates: start: 1992
  8. SALBUTAMOL [Concomitant]
     Active Substance: ALBUTEROL
     Indication: ASTHMA
     Dosage: 2 DF (CONDITIONAL)
     Route: 055
     Dates: start: 1975
  9. PREDNISONE. [Concomitant]
     Active Substance: PREDNISONE
     Dosage: UNK
     Route: 065
  10. ACETYLCYSTEIN [Concomitant]
     Active Substance: ACETYLCYSTEINE
     Dosage: UNK
     Route: 065
  11. AMITRIPTYLINE [Concomitant]
     Active Substance: AMITRIPTYLINE
     Dosage: UNK
     Route: 065
  12. GASEOVET [Concomitant]
     Indication: CHRONIC GASTRITIS
     Dosage: UNK, Q24H (20 DROPS)
     Route: 048
  13. PARACETAMOL [Suspect]
     Active Substance: ACETAMINOPHEN
     Indication: PYREXIA
     Dosage: 1 G, Q8H
     Route: 065
  14. BECLOMETASONE [Concomitant]
     Active Substance: BECLOMETHASONE DIPROPIONATE
     Indication: ASTHMA
     Dosage: 2 DF, Q12H
     Route: 055
     Dates: start: 1992
  15. BECLOMETASONE [Concomitant]
     Active Substance: BECLOMETHASONE DIPROPIONATE
     Dosage: UNK
     Route: 065
  16. GASEOVET [Concomitant]
     Dosage: UNK
     Route: 065
  17. NAPROXEN. [Concomitant]
     Active Substance: NAPROXEN
     Indication: OSTEOARTHRITIS
     Dosage: 500 MG, CONDITIONAL
     Route: 048
     Dates: start: 1992
  18. SUCRALFATE. [Concomitant]
     Active Substance: SUCRALFATE
     Indication: FIBROMYALGIA
     Dosage: 30 MG, (CONDITIONAL)
     Route: 048
  19. CLONAZEPAM. [Concomitant]
     Active Substance: CLONAZEPAM
     Indication: ANXIETY
     Dosage: UNK UNK, Q24H
     Route: 048
     Dates: start: 1992
  20. CLONAZEPAM. [Concomitant]
     Active Substance: CLONAZEPAM
     Dosage: UNK
     Route: 065
  21. CARBAMAZEPINE. [Suspect]
     Active Substance: CARBAMAZEPINE
     Indication: OSTEOARTHRITIS
     Dosage: 200 MG, CONDITIONAL
     Route: 048
     Dates: start: 1992
  22. SALBUTAMOL [Concomitant]
     Active Substance: ALBUTEROL
     Dosage: UNK
     Route: 065
  23. PREDNISONE. [Concomitant]
     Active Substance: PREDNISONE
     Indication: ASTHMA
     Dosage: 50 MG, CONDITIONAL
     Route: 048
     Dates: start: 1992
  24. ORPHENADRINE [Concomitant]
     Active Substance: ORPHENADRINE
     Indication: OSTEOARTHRITIS
     Dosage: 100 MG, CONDITIONAL
     Route: 048
     Dates: start: 1992
  25. ORPHENADRINE [Concomitant]
     Active Substance: ORPHENADRINE
     Dosage: UNK
     Route: 065
  26. AMITRIPTYLINE [Concomitant]
     Active Substance: AMITRIPTYLINE
     Indication: DEPRESSION
     Dosage: UNK UNK, Q24H
     Route: 048
     Dates: start: 1992
  27. OMEPRAZOLE. [Concomitant]
     Active Substance: OMEPRAZOLE
     Dosage: UNK
     Route: 065
  28. XOLAIR [Suspect]
     Active Substance: OMALIZUMAB
     Dosage: 150 MG, EVERY 15 DAYS
     Route: 058
     Dates: start: 202006
  29. XOLAIR [Suspect]
     Active Substance: OMALIZUMAB
     Dosage: UNK
     Route: 065
     Dates: start: 20200928
  30. VERAPAMIL [Concomitant]
     Active Substance: VERAPAMIL HYDROCHLORIDE
     Indication: MITRAL VALVE PROLAPSE
     Dosage: 70 MG, CONDITIONAL
     Route: 048
     Dates: start: 1992
  31. XOLAIR [Suspect]
     Active Substance: OMALIZUMAB
     Indication: ASTHMA
     Dosage: 150 MG, EVERY 15 DAYS
     Route: 058
     Dates: start: 2018
  32. XOLAIR [Suspect]
     Active Substance: OMALIZUMAB
     Dosage: 150 MG, (ONCE EVERY 2 WEEKS)
     Route: 058
     Dates: start: 2018, end: 20210506
  33. SERETIDE [Concomitant]
     Active Substance: FLUTICASONE PROPIONATE\SALMETEROL XINAFOATE
     Dosage: UNK
     Route: 065
  34. ALPRAZOLAM. [Concomitant]
     Active Substance: ALPRAZOLAM
     Indication: ANXIETY
     Dosage: UNK, Q24H
     Route: 048
     Dates: start: 1992
  35. ALPRAZOLAM. [Concomitant]
     Active Substance: ALPRAZOLAM
     Dosage: UNK
     Route: 065

REACTIONS (19)
  - Arthralgia [Recovering/Resolving]
  - Feeling abnormal [Recovering/Resolving]
  - Neck pain [Recovering/Resolving]
  - COVID-19 [Unknown]
  - Chest pain [Recovered/Resolved]
  - Nausea [Not Recovered/Not Resolved]
  - Headache [Recovered/Resolved]
  - Vomiting [Not Recovered/Not Resolved]
  - Discomfort [Recovering/Resolving]
  - Headache [Recovered/Resolved]
  - Chills [Unknown]
  - Musculoskeletal discomfort [Unknown]
  - Hypoacusis [Not Recovered/Not Resolved]
  - Pyrexia [Unknown]
  - Product use in unapproved indication [Unknown]
  - Choking [Recovering/Resolving]
  - Rhinalgia [Recovered/Resolved]
  - Oropharyngeal discomfort [Recovering/Resolving]
  - Abdominal discomfort [Not Recovered/Not Resolved]

NARRATIVE: CASE EVENT DATE: 202003
